FAERS Safety Report 5897325-X (Version None)
Quarter: 2008Q3

REPORT INFORMATION
  Report Type: 
  Country: None (occurrence: None)
  Receive Date: 20080915
  Receipt Date: 20070802
  Transmission Date: 20090109
  Serious: Yes (Other)
  Sender: FDA-Public Use
  Company Number: PHEH2007US04791

PATIENT
  Age: 39 Year
  Sex: Female

DRUGS (10)
  1. ZELNORM [Suspect]
     Indication: IRRITABLE BOWEL SYNDROME
     Dosage: 6 MG, BID, ORAL
     Route: 048
     Dates: start: 20060313, end: 20070409
  2. CORTISONE (CORTISONE) [Concomitant]
  3. CYMBALTA [Concomitant]
  4. SYNTHROID [Concomitant]
  5. EFFEXOR [Concomitant]
  6. ASCORBIC ACID [Concomitant]
  7. L-LYSINE (LYSINE) [Concomitant]
  8. DECADRON /NET/ (DEXAMETHASONE SODIUM PHOSPHATE) [Concomitant]
  9. FLEXERIL [Concomitant]
  10. VICODIN [Concomitant]

REACTIONS (11)
  - ANXIETY [None]
  - BLOOD PRESSURE INCREASED [None]
  - CHEST DISCOMFORT [None]
  - CHEST PAIN [None]
  - DIZZINESS [None]
  - DYSPNOEA [None]
  - ELECTROCARDIOGRAM ABNORMAL [None]
  - ELECTROCARDIOGRAM AMBULATORY [None]
  - FATIGUE [None]
  - HEART RATE INCREASED [None]
  - TACHYCARDIA [None]
